FAERS Safety Report 4821999-5 (Version None)
Quarter: 2005Q4

REPORT INFORMATION
  Report Type: 
  Country: None (occurrence: None)
  Receive Date: 20051107
  Receipt Date: 20051031
  Transmission Date: 20060501
  Serious: Yes (Hospitalization)
  Sender: FDA-Public Use
  Company Number: US-JNJFOC-20051100213

PATIENT
  Age: 2 Day
  Sex: Female
  Weight: 3.8 kg

DRUGS (2)
  1. TYLENOL (CAPLET) [Suspect]
  2. TYLENOL (CAPLET) [Suspect]
     Indication: DRUG USE FOR UNKNOWN INDICATION
     Dosage: 110 MG; }8 HR{=24 HR

REACTIONS (2)
  - HEPATIC FUNCTION ABNORMAL [None]
  - IATROGENIC INJURY [None]
